FAERS Safety Report 5500129-0 (Version None)
Quarter: 2007Q4

REPORT INFORMATION
  Report Type: 
  Country: None (occurrence: None)
  Receive Date: 20071025
  Receipt Date: 20071019
  Transmission Date: 20080405
  Serious: Yes (Hospitalization, Other)
  Sender: FDA-Public Use
  Company Number: 2007-04718

PATIENT
  Age: 55 Year
  Sex: Male

DRUGS (2)
  1. TRIHEXYPHENIDYL HCL [Suspect]
     Indication: PARKINSONISM
     Dosage: 6 MG, DAILY (AT 31 YEARS OF AGE), ORAL; 20 MG, DAILY(AT 49 YEARS OF AGE), ORAL
     Route: 048
  2. TRIHEXYPHENIDYL HCL [Suspect]
     Indication: PARKINSONISM
     Dosage: 6 MG, DAILY (AT 31 YEARS OF AGE), ORAL; 20 MG, DAILY(AT 49 YEARS OF AGE), ORAL
     Route: 048

REACTIONS (6)
  - COGNITIVE DISORDER [None]
  - DRUG ABUSER [None]
  - DRUG DEPENDENCE [None]
  - DRUG INTERACTION [None]
  - DRUG WITHDRAWAL SYNDROME [None]
  - MEMORY IMPAIRMENT [None]
